FAERS Safety Report 6015323-2 (Version None)
Quarter: 2008Q4

REPORT INFORMATION
  Report Type: 
  Country: None (occurrence: None)
  Receive Date: 20081222
  Receipt Date: 20081211
  Transmission Date: 20090506
  Serious: Yes (Life-Threatening, Hospitalization)
  Sender: FDA-Public Use
  Company Number: IT-PFIZER INC-2008087512

PATIENT

DRUGS (3)
  1. SUNITINIB MALATE [Suspect]
     Indication: BREAST CANCER
     Dosage: 25 MG, 1X/DAY
     Route: 048
     Dates: start: 20080807, end: 20081011
  2. PACLITAXEL [Suspect]
     Indication: BREAST CANCER
     Dosage: 100 MG, EVERY 3OF 4 WEEKS
     Route: 042
     Dates: start: 20080807, end: 20081009
  3. LORTAAN [Concomitant]
     Indication: HYPERTENSION
     Dosage: 50 MG, 1X/DAY
     Route: 048
     Dates: start: 20080905

REACTIONS (1)
  - COLONIC OBSTRUCTION [None]
